FAERS Safety Report 7553375-9 (Version None)
Quarter: 2011Q2

REPORT INFORMATION
  Report Type: 
  Country: None (occurrence: None)
  Receive Date: 20110617
  Receipt Date: 20110406
  Transmission Date: 20111010
  Serious: No
  Sender: FDA-Public Use
  Company Number: A0921659A

PATIENT
  Age: 66 Year
  Sex: Female

DRUGS (3)
  1. IMITREX [Concomitant]
     Indication: HEADACHE
  2. PROMACTA [Suspect]
     Dosage: 50MG PER DAY
     Route: 048
     Dates: start: 20091001
  3. HIGH BLOOD PRESSURE PILL [Concomitant]

REACTIONS (2)
  - PLATELET COUNT ABNORMAL [None]
  - DRUG INEFFECTIVE [None]
